FAERS Safety Report 9734901 (Version 1)
Quarter: 2013Q4

REPORT INFORMATION
  Report Type: Spontaneous
  Country: US (occurrence: US)
  Receive Date: 20131206
  Receipt Date: 20131206
  Transmission Date: 20140711
  Serious: No
  Sender: FDA-Public Use
  Company Number: US-PFIZER INC-2013348843

PATIENT
  Sex: Female

DRUGS (3)
  1. CHANTIX [Suspect]
     Dosage: UNK
  2. CHANTIX [Suspect]
     Dosage: UNK
     Dates: start: 2013, end: 2013
  3. SERTRALINE [Concomitant]
     Indication: ANXIETY
     Dosage: UNK

REACTIONS (3)
  - Hostility [Unknown]
  - Irritability [Unknown]
  - Anger [Unknown]
